FAERS Safety Report 12352341 (Version 1)
Quarter: 2016Q2

REPORT INFORMATION
  Report Type: Spontaneous
  Country: US (occurrence: US)
  Receive Date: 20160510
  Receipt Date: 20160510
  Transmission Date: 20160815
  Serious: No
  Sender: FDA-Public Use
  Company Number: US-BAYER-2016-087916

PATIENT
  Age: 58 Year
  Sex: Female
  Weight: 65.76 kg

DRUGS (3)
  1. CLARITIN [Suspect]
     Active Substance: LORATADINE
  2. INDOCIN [Concomitant]
     Active Substance: INDOMETHACIN\INDOMETHACIN SODIUM
     Dosage: 75 MG, BID
  3. SOMA [Concomitant]
     Active Substance: CARISOPRODOL
     Indication: ARTHRITIS
     Dosage: 300 MG, QD AT NIGHT

REACTIONS (4)
  - Drug ineffective [None]
  - Headache [Not Recovered/Not Resolved]
  - Oropharyngeal pain [Not Recovered/Not Resolved]
  - Rhinorrhoea [Not Recovered/Not Resolved]

NARRATIVE: CASE EVENT DATE: 20160423
